FAERS Safety Report 21413463 (Version 1)
Quarter: 2022Q4

REPORT INFORMATION
  Report Type: Spontaneous
  Country: US (occurrence: US)
  Receive Date: 20221006
  Receipt Date: 20221006
  Transmission Date: 20230112
  Serious: No
  Sender: FDA-Public Use
  Company Number: US-BION-010856

PATIENT
  Sex: Female

DRUGS (1)
  1. IMODIUM A-D [Suspect]
     Active Substance: LOPERAMIDE HYDROCHLORIDE
     Indication: Bowel movement irregularity
     Dosage: ONCE A DAY, YESTERDAY SHE TOOK TWO PILLS

REACTIONS (4)
  - Throat irritation [Unknown]
  - Nasal discomfort [Unknown]
  - Drug ineffective for unapproved indication [Not Recovered/Not Resolved]
  - Incorrect dose administered [Not Recovered/Not Resolved]
